FAERS Safety Report 6681593-0 (Version None)
Quarter: 2010Q2

REPORT INFORMATION
  Report Type: 
  Country: None (occurrence: None)
  Receive Date: 20100414
  Receipt Date: 20100402
  Transmission Date: 20101027
  Serious: Yes (Other)
  Sender: FDA-Public Use
  Company Number: US-BRISTOL-MYERS SQUIBB COMPANY-14710222

PATIENT
  Age: 65 Year
  Sex: Female
  Weight: 69 kg

DRUGS (16)
  1. CETUXIMAB [Suspect]
     Indication: NON-SMALL CELL LUNG CANCER
     Dosage: CHIMERIC ANTI-EGFR MAB.RECENT INF ON 23JUN09(CYCLE 2 WEEK 1).
     Route: 042
     Dates: start: 20090602, end: 20090609
  2. CARBOPLATIN [Suspect]
     Indication: NON-SMALL CELL LUNG CANCER
     Dosage: RECENT INF:25JUN09 (1 IN 3WK, IV).
     Route: 042
     Dates: start: 20090602, end: 20090602
  3. GEMCITABINE HCL [Suspect]
     Indication: NON-SMALL CELL LUNG CANCER
     Dosage: RECENT INF ON 25JUN09 (2 IN 3WK, IV).
     Route: 042
     Dates: start: 20090602, end: 20090609
  4. LIPITOR [Concomitant]
     Indication: HYPERLIPIDAEMIA
     Route: 048
  5. PROTONIX [Concomitant]
     Route: 048
  6. LISINOPRIL [Concomitant]
     Route: 048
  7. ROZEREM [Concomitant]
     Indication: INSOMNIA
     Route: 048
     Dates: end: 20090903
  8. CENTRUM SILVER [Concomitant]
     Indication: VITAMIN SUPPLEMENTATION
     Dosage: 1 DF = 1 TAB
     Route: 048
  9. CALCIUM CARBONATE [Concomitant]
     Indication: OSTEOPOROSIS
     Dosage: 4 DF = 4 TABS
     Route: 048
  10. IMODIUM [Concomitant]
     Indication: DIARRHOEA
     Route: 048
  11. ONDANSETRON [Concomitant]
     Indication: ANTIEMETIC SUPPORTIVE CARE
     Dosage: AS NEEDED.
     Route: 048
     Dates: start: 20090702, end: 20090903
  12. LEXAPRO [Concomitant]
     Dosage: UNKNOWN - 02JUL2009:15 MG, QD, ORAL 02JUL2009 - UNKNOWN:20 MG, QD, ORAL
     Route: 048
     Dates: end: 20090702
  13. METOCLOPRAMIDE HYDROCHLORIDE [Concomitant]
     Indication: ANTIEMETIC SUPPORTIVE CARE
     Route: 048
     Dates: start: 20090708
  14. MAGNESIUM CHLORIDE [Concomitant]
     Indication: MINERAL SUPPLEMENTATION
     Route: 048
     Dates: start: 20090723
  15. TYLENOL-500 [Concomitant]
     Indication: PAIN
     Dosage: 1DF=1TAB
     Route: 048
     Dates: start: 20090917, end: 20091209
  16. CLARITIN [Concomitant]
     Route: 065
     Dates: start: 20091001, end: 20091209

REACTIONS (1)
  - THROMBOCYTOPENIA [None]
